FAERS Safety Report 9320507 (Version 1)
Quarter: 2013Q2

REPORT INFORMATION
  Report Type: Spontaneous
  Country: AU (occurrence: AU)
  Receive Date: 20130530
  Receipt Date: 20130530
  Transmission Date: 20140414
  Serious: Yes (Other)
  Sender: FDA-Public Use
  Company Number: AU-MYLANLABS-2013S1011137

PATIENT
  Age: 40 Year
  Sex: Female

DRUGS (1)
  1. NORTRIPTYLINE [Suspect]
     Indication: DEPRESSION
     Route: 065

REACTIONS (1)
  - Psychotic disorder [Recovered/Resolved]
